FAERS Safety Report 8596388-0 (Version None)
Quarter: 2012Q3

REPORT INFORMATION
  Report Type: 
  Country: None (occurrence: None)
  Receive Date: 20120815
  Receipt Date: 20120809
  Transmission Date: 20120928
  Serious: Yes (Other)
  Sender: FDA-Public Use
  Company Number: US-PFIZER INC-2012194967

PATIENT
  Age: 41 Year

DRUGS (3)
  1. GEODON [Suspect]
     Indication: SLEEP DISORDER
  2. GEODON [Suspect]
     Indication: DEPRESSION
     Dosage: 60 MG, 3X/DAY (TID)
  3. GEODON [Suspect]
     Indication: ANXIETY

REACTIONS (11)
  - ACTIVITIES OF DAILY LIVING IMPAIRED [None]
  - CRYING [None]
  - SLEEP DISORDER [None]
  - CONFUSIONAL STATE [None]
  - MENTAL DISORDER [None]
  - DEPRESSION [None]
  - DISTURBANCE IN ATTENTION [None]
  - PANIC ATTACK [None]
  - ANXIETY DISORDER [None]
  - FEELING ABNORMAL [None]
  - RESTLESSNESS [None]
